FAERS Safety Report 15292199 (Version 1)
Quarter: 2018Q3

REPORT INFORMATION
  Report Type: Spontaneous
  Country: US (occurrence: US)
  Receive Date: 20180806
  Receipt Date: 20180806
  Transmission Date: 20181010
  Serious: No
  Sender: FDA-Public Use
  Company Number: None

PATIENT
  Age: 33 Year
  Sex: Male
  Weight: 101.25 kg

DRUGS (10)
  1. CPAP [Concomitant]
     Active Substance: DEVICE
  2. PROPRANOLOL ER [Concomitant]
     Active Substance: PROPRANOLOL HYDROCHLORIDE
  3. IBUPROFEN. [Concomitant]
     Active Substance: IBUPROFEN
  4. FLUORESCEIN INJECTION [Suspect]
     Active Substance: FLUORESCEIN
     Indication: ANGIOGRAM
     Dates: start: 20180803, end: 20180803
  5. PANTOPRAZOLE [Concomitant]
     Active Substance: PANTOPRAZOLE
  6. ZOLOFT [Concomitant]
     Active Substance: SERTRALINE HYDROCHLORIDE
  7. PARACETAMOL [Concomitant]
     Active Substance: ACETAMINOPHEN
  8. SIMVASTATIN. [Concomitant]
     Active Substance: SIMVASTATIN
  9. LOSARTAN. [Concomitant]
     Active Substance: LOSARTAN
  10. ZYRTEC [Concomitant]
     Active Substance: CETIRIZINE HYDROCHLORIDE

REACTIONS (9)
  - Dysgeusia [None]
  - Eye pain [None]
  - Fatigue [None]
  - Palpitations [None]
  - Lacrimation increased [None]
  - Migraine [None]
  - Ocular hyperaemia [None]
  - Erythropsia [None]
  - Nausea [None]

NARRATIVE: CASE EVENT DATE: 20180803
